FAERS Safety Report 11885949 (Version 13)
Quarter: 2016Q2

REPORT INFORMATION
  Report Type: Spontaneous
  Country: US (occurrence: US)
  Receive Date: 20160104
  Receipt Date: 20160421
  Transmission Date: 20160815
  Serious: Yes (Life-Threatening, Hospitalization, Other)
  Sender: FDA-Public Use
  Company Number: US-B.I. PHARMACEUTICALS,INC./RIDGEFIELD-2015-BI-72870BP

PATIENT
  Age: 68 Year
  Sex: Female
  Weight: 117 kg

DRUGS (17)
  1. PRADAXA [Suspect]
     Active Substance: DABIGATRAN ETEXILATE MESYLATE
     Indication: ATRIAL FIBRILLATION
     Dosage: 150 MG
     Route: 065
  2. ORENITRAM [Suspect]
     Active Substance: TREPROSTINIL
     Indication: PULMONARY HYPERTENSION
     Dosage: 3 MG
     Route: 048
     Dates: start: 20151030, end: 20151214
  3. AMBRISENTAN [Concomitant]
     Active Substance: AMBRISENTAN
     Indication: PRODUCT USED FOR UNKNOWN INDICATION
     Dosage: 40 MG
     Route: 065
     Dates: start: 201408
  4. ORENITRAM [Suspect]
     Active Substance: TREPROSTINIL
     Indication: PULMONARY ARTERIAL HYPERTENSION
     Dosage: 9 MG
     Route: 048
  5. REMODULIN [Suspect]
     Active Substance: TREPROSTINIL
     Dosage: STRENGTH: 2.5 MG/ML; DAILY DOSE: 0.008UG/KG; FORMULATION: INJECTION
     Route: 042
     Dates: start: 20151214
  6. LETAIRIS [Suspect]
     Active Substance: AMBRISENTAN
     Indication: PULMONARY ARTERIAL HYPERTENSION
     Dosage: 10 MG
     Route: 065
     Dates: start: 20140730
  7. METOLAZONE. [Concomitant]
     Active Substance: METOLAZONE
     Indication: PRODUCT USED FOR UNKNOWN INDICATION
     Route: 065
  8. PRADAXA [Suspect]
     Active Substance: DABIGATRAN ETEXILATE MESYLATE
     Indication: PULMONARY ARTERIAL HYPERTENSION
  9. ORENITRAM [Suspect]
     Active Substance: TREPROSTINIL
     Route: 048
  10. REMODULIN [Suspect]
     Active Substance: TREPROSTINIL
     Indication: PULMONARY HYPERTENSION
     Dosage: STRENGTH: 2.5 MG/ML; DAILY DOSE:  0.006 UG/KG/MIN; FORMULATION: INJECTION
     Route: 058
     Dates: start: 20141114, end: 20151214
  11. LETAIRIS [Suspect]
     Active Substance: AMBRISENTAN
     Route: 065
  12. REMODULIN [Suspect]
     Active Substance: TREPROSTINIL
     Indication: PULMONARY ARTERIAL HYPERTENSION
     Dosage: STRENGTH: 2.5 MG/ML; DAILY DOSE: 0.004UG/KG; FORMULATION: INJECTION
     Route: 058
  13. LETAIRIS [Suspect]
     Active Substance: AMBRISENTAN
     Dosage: DOSE PER APPLICATION AND DAILY DOSE: 10
     Route: 065
  14. ORENITRAM [Suspect]
     Active Substance: TREPROSTINIL
     Route: 048
     Dates: start: 201511
  15. TREPROSTINIL [Concomitant]
     Active Substance: TREPROSTINIL
     Indication: PRODUCT USED FOR UNKNOWN INDICATION
     Route: 065
     Dates: start: 201412
  16. BUMEX [Concomitant]
     Active Substance: BUMETANIDE
     Indication: PRODUCT USED FOR UNKNOWN INDICATION
     Route: 065
  17. PREDNISONE. [Concomitant]
     Active Substance: PREDNISONE
     Indication: PRODUCT USED FOR UNKNOWN INDICATION
     Route: 065

REACTIONS (17)
  - Infusion site abscess [Recovered/Resolved]
  - Infusion site inflammation [Unknown]
  - Oedema peripheral [Not Recovered/Not Resolved]
  - Pain [Unknown]
  - Diarrhoea [Recovered/Resolved with Sequelae]
  - Right ventricular failure [Recovered/Resolved]
  - Diarrhoea [Not Recovered/Not Resolved]
  - Skin infection [Unknown]
  - Injection site abscess [Recovered/Resolved]
  - Abdominal discomfort [Not Recovered/Not Resolved]
  - Pulmonary arterial hypertension [Unknown]
  - Infusion site pain [Unknown]
  - Skin lesion [Not Recovered/Not Resolved]
  - Oedema [Not Recovered/Not Resolved]
  - Hypotension [Unknown]
  - Fatigue [Unknown]
  - Haematochezia [Recovered/Resolved]

NARRATIVE: CASE EVENT DATE: 201501
